FAERS Safety Report 18106024 (Version 2)
Quarter: 2020Q3

REPORT INFORMATION
  Report Type: Report from Study
  Country: BR (occurrence: BR)
  Receive Date: 20200803
  Receipt Date: 20200816
  Transmission Date: 20201103
  Serious: Yes (Disabling)
  Sender: FDA-Public Use
  Company Number: NVSC2020BR215430

PATIENT
  Age: 58 Year
  Sex: Male
  Weight: 140 kg

DRUGS (6)
  1. MAGNESIUM CHLORIDE. [Concomitant]
     Active Substance: MAGNESIUM CHLORIDE
     Indication: PRODUCT USED FOR UNKNOWN INDICATION
     Dosage: UNK, QD (DAILY)
     Route: 065
  2. COSENTYX [Suspect]
     Active Substance: SECUKINUMAB
     Dosage: 150 MG, QMO ((EVERY 28 DAYS)
     Route: 065
     Dates: start: 201902
  3. IBUPROFEN. [Concomitant]
     Active Substance: IBUPROFEN
     Indication: PRODUCT USED FOR UNKNOWN INDICATION
     Dosage: UNK
     Route: 065
  4. HYDROLYZED COLLAGEN [Concomitant]
     Indication: PRODUCT USED FOR UNKNOWN INDICATION
     Dosage: UNK
     Route: 065
  5. COSENTYX [Suspect]
     Active Substance: SECUKINUMAB
     Indication: PSORIASIS
     Dosage: 2 DF, QMO (EVERY 28 DAYS)
     Route: 065
     Dates: start: 201810
  6. COSENTYX [Suspect]
     Active Substance: SECUKINUMAB
     Dosage: UNK
     Route: 065
     Dates: start: 20200708

REACTIONS (9)
  - Arthropathy [Recovering/Resolving]
  - Arthralgia [Recovering/Resolving]
  - Skin exfoliation [Unknown]
  - Hypokinesia [Recovering/Resolving]
  - Insomnia [Recovering/Resolving]
  - Pruritus [Unknown]
  - Psoriasis [Not Recovered/Not Resolved]
  - Gait disturbance [Recovering/Resolving]
  - Skin haemorrhage [Unknown]

NARRATIVE: CASE EVENT DATE: 202003
